FAERS Safety Report 6642536-9 (Version None)
Quarter: 2010Q1

REPORT INFORMATION
  Report Type: 
  Country: None (occurrence: None)
  Receive Date: 20100316
  Receipt Date: 20100308
  Transmission Date: 20100710
  Serious: Yes (Other)
  Sender: FDA-Public Use
  Company Number: 2010SP005450

PATIENT

DRUGS (2)
  1. REMERGIL (MIRTAZAPINE /01293201/) [Suspect]
     Indication: DEPRESSION
     Dosage: 15 MG;QD ; 15 MG;QD
     Dates: start: 20070101, end: 20100209
  2. REMERGIL (MIRTAZAPINE /01293201/) [Suspect]
     Indication: DEPRESSION
     Dosage: 15 MG;QD ; 15 MG;QD
     Dates: start: 20100224

REACTIONS (2)
  - ATRIOVENTRICULAR BLOCK SECOND DEGREE [None]
  - PERFORMANCE STATUS DECREASED [None]
